FAERS Safety Report 5828073-X (Version None)
Quarter: 2008Q3

REPORT INFORMATION
  Report Type: 
  Country: None (occurrence: None)
  Receive Date: 20080730
  Receipt Date: 20070620
  Transmission Date: 20090109
  Serious: No
  Sender: FDA-Public Use
  Company Number: A0658955A

PATIENT
  Age: 11 Month
  Sex: Female

DRUGS (2)
  1. ZANTAC [Suspect]
     Dosage: 1.2ML THREE TIMES PER DAY
     Route: 048
  2. BETHANECOL [Concomitant]

REACTIONS (2)
  - ASPIRATION [None]
  - DYSPNOEA [None]
